FAERS Safety Report 4944284-X (Version None)
Quarter: 2006Q1

REPORT INFORMATION
  Report Type: 
  Country: None (occurrence: None)
  Receive Date: 20060315
  Receipt Date: 20060113
  Transmission Date: 20060701
  Serious: Yes (Other)
  Sender: FDA-Public Use
  Company Number: GB-GLAXOSMITHKLINE-B0406489A

PATIENT
  Age: 61 Year
  Sex: Female

DRUGS (5)
  1. IMIGRAN [Suspect]
     Indication: MIGRAINE
     Dosage: 100MG AS REQUIRED
     Route: 048
  2. GLUCOSAMINE [Concomitant]
     Route: 048
  3. CHONDROITIN [Concomitant]
     Route: 048
  4. OMEGA-3 [Concomitant]
     Route: 048
  5. DICLOFENAC EPOLAMINE PATCH [Concomitant]
     Indication: BACK PAIN
     Dosage: 50MG THREE TIMES PER DAY
     Route: 048

REACTIONS (3)
  - ALANINE AMINOTRANSFERASE INCREASED [None]
  - GAMMA-GLUTAMYLTRANSFERASE INCREASED [None]
  - LIVER FUNCTION TEST ABNORMAL [None]
